FAERS Safety Report 4619029-3 (Version None)
Quarter: 2005Q1

REPORT INFORMATION
  Report Type: 
  Country: None (occurrence: None)
  Receive Date: 20050317
  Receipt Date: 20050317
  Transmission Date: 20050727
  Serious: Yes (Hospitalization)
  Sender: FDA-Public Use
  Company Number: None

PATIENT
  Age: 62 Year
  Sex: Male
  Weight: 112.0385 kg

DRUGS (2)
  1. FENTANYL   100 MCG [Suspect]
     Indication: PAIN MANAGEMENT
     Dosage: 300 MCG    Q72 HOURS   TRANSDERMA
     Route: 062
     Dates: start: 20050228, end: 20050316
  2. OXYCODONE       40 MG [Suspect]
     Indication: PAIN MANAGEMENT
     Dosage: 120 MG    Q 12 HOURS   ORAL
     Route: 048
     Dates: start: 20050228, end: 20050316

REACTIONS (7)
  - ACCIDENTAL OVERDOSE [None]
  - DEPRESSED LEVEL OF CONSCIOUSNESS [None]
  - MENTAL STATUS CHANGES [None]
  - PAIN [None]
  - SEDATION [None]
  - SOMNOLENCE [None]
  - VOMITING [None]
